FAERS Safety Report 22342739 (Version 1)
Quarter: 2023Q2

REPORT INFORMATION
  Report Type: Spontaneous
  Country: US (occurrence: US)
  Receive Date: 20230519
  Receipt Date: 20230519
  Transmission Date: 20230721
  Serious: No
  Sender: FDA-Public Use
  Company Number: US-SA-SAC20230518000515

PATIENT
  Age: 26 Year
  Sex: Female

DRUGS (2)
  1. DUPIXENT [Suspect]
     Active Substance: DUPILUMAB
     Indication: Dermatitis atopic
     Dosage: 300MG QOW
     Route: 058
  2. DUPIXENT [Suspect]
     Active Substance: DUPILUMAB
     Indication: Pruritus

REACTIONS (11)
  - Pain [Unknown]
  - Eczema [Unknown]
  - Skin induration [Not Recovered/Not Resolved]
  - Skin texture abnormal [Not Recovered/Not Resolved]
  - Perioral dermatitis [Unknown]
  - Trismus [Unknown]
  - Oral pain [Unknown]
  - Limb discomfort [Unknown]
  - Condition aggravated [Unknown]
  - Urticaria [Not Recovered/Not Resolved]
  - Product use in unapproved indication [Unknown]
